FAERS Safety Report 25762952 (Version 2)
Quarter: 2025Q3

REPORT INFORMATION
  Report Type: Spontaneous
  Country: BR (occurrence: BR)
  Receive Date: 20250904
  Receipt Date: 20250915
  Transmission Date: 20251021
  Serious: Yes (Life-Threatening, Hospitalization, Other)
  Sender: JOHNSON AND JOHNSON
  Company Number: BR-JNJFOC-20250901518

PATIENT
  Age: 40 Year
  Sex: Female

DRUGS (1)
  1. SPRAVATO [Suspect]
     Active Substance: ESKETAMINE
     Indication: Product used for unknown indication
     Dosage: FOR THE FIRST 4 WEEKS (INDUCTION) FOLLOWED BY WEEKLY MAINTENANCE AND THEN
     Route: 045

REACTIONS (5)
  - Suicide attempt [Unknown]
  - Sedation [Unknown]
  - Blood pressure increased [Unknown]
  - Dissociation [Recovering/Resolving]
  - Depression [Unknown]
